FAERS Safety Report 21615040 (Version 2)
Quarter: 2022Q4

REPORT INFORMATION
  Report Type: Spontaneous
  Country: JP (occurrence: JP)
  Receive Date: 20221118
  Receipt Date: 20221219
  Transmission Date: 20230113
  Serious: Yes (Hospitalization, Other)
  Sender: FDA-Public Use
  Company Number: JP-GSKNCCC-Case-01612351_AE-64388

PATIENT

DRUGS (12)
  1. FLUTICASONE FUROATE\VILANTEROL TRIFENATATE [Suspect]
     Active Substance: FLUTICASONE FUROATE\VILANTEROL TRIFENATATE
     Indication: Chronic obstructive pulmonary disease
     Dosage: 100 ?G, QD, 1 INHALATION/DAY
     Route: 055
     Dates: end: 20221115
  2. DONEPEZIL HYDROCHLORIDE [Concomitant]
     Active Substance: DONEPEZIL HYDROCHLORIDE
     Indication: Dementia
     Dosage: 3 MG, AFTER BREAKFAST
  3. BICALUTAMIDE [Concomitant]
     Active Substance: BICALUTAMIDE
     Indication: Prostate cancer
     Dosage: 80 MG, AFTER BREAKFAST
     Route: 048
  4. AZOSEMIDE [Concomitant]
     Active Substance: AZOSEMIDE
     Indication: Cardiac failure
     Dosage: 30 MG, AFTER BREAKFAST
     Route: 048
  5. EDOXABAN TOSYLATE [Concomitant]
     Active Substance: EDOXABAN TOSYLATE
     Indication: Atrial fibrillation
     Dosage: 1.5 MG, AFTER BREAKFAST
     Route: 048
  6. LANSOPRAZOLE [Concomitant]
     Active Substance: LANSOPRAZOLE
     Dosage: 15 MG, AFTER BREAKFAST
  7. BISOPROLOL FUMARATE TABLET [Concomitant]
     Indication: Cardiac failure
     Dosage: 1.25 MG, AFTER BREAKFAST
     Route: 048
  8. COLCHICINE [Concomitant]
     Active Substance: COLCHICINE
     Indication: Pericarditis
     Dosage: 0.5 MG, AFTER BREAKFAST
     Route: 048
  9. THYRADIN (LEVOTHYROXINE SODIUM) [Concomitant]
     Indication: Hypothyroidism
     Dosage: 150 ?G, AFTER BREAKFAST
  10. VALSARTAN [Concomitant]
     Active Substance: VALSARTAN
     Indication: Hypertension
     Dosage: 80 MG, AFTER BREAKFAST
  11. TAMSULOSIN HYDROCHLORIDE [Concomitant]
     Active Substance: TAMSULOSIN HYDROCHLORIDE
     Indication: Benign prostatic hyperplasia
     Dosage: 0.2 MG, AFTER DINNER
  12. BELSOMRA [Concomitant]
     Active Substance: SUVOREXANT
     Indication: Insomnia
     Dosage: 15 MG, BEFORE BEDTIME

REACTIONS (6)
  - Pneumonia fungal [Recovering/Resolving]
  - Pneumonia aspiration [Unknown]
  - Bronchitis [Unknown]
  - Pleurisy [Unknown]
  - Inflammation [Unknown]
  - Dysphagia [Unknown]

NARRATIVE: CASE EVENT DATE: 20220831
